FAERS Safety Report 5281079-4 (Version None)
Quarter: 2007Q1

REPORT INFORMATION
  Report Type: 
  Country: None (occurrence: None)
  Receive Date: 20061229
  Receipt Date: 20061003
  Transmission Date: 20070707
  Serious: Yes (Other)
  Sender: FDA-Public Use
  Company Number: 2006UW19238

PATIENT
  Age: 67 Year
  Sex: Female
  Weight: 68.038 kg

DRUGS (1)
  1. CRESTOR [Suspect]
     Indication: BLOOD CHOLESTEROL INCREASED
     Dosage: 2.5 MG QD PO
     Route: 048
     Dates: start: 20051001, end: 20060920

REACTIONS (4)
  - ARTHRITIS [None]
  - MYOPATHY [None]
  - NEUROPATHY [None]
  - SCIATICA [None]
